FAERS Safety Report 5042114-1 (Version None)
Quarter: 2006Q2

REPORT INFORMATION
  Report Type: 
  Country: None (occurrence: None)
  Receive Date: 20060627
  Receipt Date: 20060609
  Transmission Date: 20061013
  Serious: Yes (Other)
  Sender: FDA-Public Use
  Company Number: US-2006-015175

PATIENT
  Age: 43 Year
  Sex: Female

DRUGS (5)
  1. BETASERON (INTERFERON BETA-1B) [Suspect]
     Indication: MULTIPLE SCLEROSIS
     Dosage: 2 MIU/M2, EVERY 2D, SUBCUTANEOUS
     Route: 058
     Dates: start: 20060601, end: 20060601
  2. SYNTHROID [Concomitant]
  3. BACLOFEN [Concomitant]
  4. VITAMIN B COMPLEX CAP [Concomitant]
  5. FOLIC ACID [Concomitant]

REACTIONS (4)
  - ABDOMINAL PAIN [None]
  - DIARRHOEA [None]
  - DIARRHOEA HAEMORRHAGIC [None]
  - RECTAL HAEMORRHAGE [None]
